FAERS Safety Report 7351315-9 (Version None)
Quarter: 2011Q1

REPORT INFORMATION
  Report Type: 
  Country: None (occurrence: None)
  Receive Date: 20110314
  Receipt Date: 20110228
  Transmission Date: 20110831
  Serious: Yes (Other)
  Sender: FDA-Public Use
  Company Number: PHHY2011US02971

PATIENT
  Sex: Male
  Weight: 67.574 kg

DRUGS (7)
  1. PRAMIPEXOLE [Concomitant]
     Dosage: 0.5 MG, 5QD
     Route: 048
  2. GLEEVEC [Suspect]
     Indication: MYELODYSPLASTIC SYNDROME
  3. CARVEDILOL [Concomitant]
  4. EXJADE [Suspect]
     Indication: MYELODYSPLASTIC SYNDROME
     Dosage: 1375 MG, QD
     Route: 048
     Dates: start: 20101111
  5. PREDNISONE [Concomitant]
     Dosage: 2.5 MG, QD
     Route: 048
  6. GABAPENTIN [Concomitant]
     Dosage: 600 MG, UNK
     Route: 048
  7. LASIX [Concomitant]
     Dosage: 20 MG, BID
     Route: 048

REACTIONS (5)
  - FLUID RETENTION [None]
  - PLEURAL EFFUSION [None]
  - CARDIOVASCULAR DISORDER [None]
  - ANAEMIA [None]
  - DRUG INEFFECTIVE [None]
